FAERS Safety Report 24439294 (Version 4)
Quarter: 2025Q4

REPORT INFORMATION
  Report Type: Spontaneous
  Country: CA (occurrence: CA)
  Receive Date: 20241015
  Receipt Date: 20251211
  Transmission Date: 20260118
  Serious: Yes (Hospitalization, Other)
  Sender: ALEXION PHARMACEUTICALS
  Company Number: CA-AstraZeneca-CH-00710646A

PATIENT
  Age: 76 Year
  Sex: Male
  Weight: 105 kg

DRUGS (32)
  1. QUETIAPINE FUMARATE [Suspect]
     Active Substance: QUETIAPINE FUMARATE
     Indication: Hallucination
     Dosage: 25 MILLIGRAM, TID
  2. QUETIAPINE FUMARATE [Suspect]
     Active Substance: QUETIAPINE FUMARATE
     Indication: Accommodation disorder
     Dosage: 12.5 MILLIGRAM, QD
  3. QUETIAPINE FUMARATE [Suspect]
     Active Substance: QUETIAPINE FUMARATE
     Dosage: 100 MILLIGRAM, QD
  4. QUETIAPINE FUMARATE [Suspect]
     Active Substance: QUETIAPINE FUMARATE
     Dosage: 25 MILLIGRAM, QD
  5. QUETIAPINE FUMARATE [Suspect]
     Active Substance: QUETIAPINE FUMARATE
     Dosage: 12.5 MILLIGRAM
  6. CITALOPRAM HYDROBROMIDE [Suspect]
     Active Substance: CITALOPRAM HYDROBROMIDE
     Indication: Dementia with Lewy bodies
     Dosage: 20 MILLIGRAM, QD
     Route: 065
  7. CLONAZEPAM [Suspect]
     Active Substance: CLONAZEPAM
     Indication: Dementia with Lewy bodies
     Dosage: 0.5 MILLIGRAM, QD
  8. LORAZEPAM [Suspect]
     Active Substance: LORAZEPAM
     Indication: Dementia with Lewy bodies
     Dosage: UNK
     Route: 065
  9. LOXAPINE [Suspect]
     Active Substance: LOXAPINE
     Indication: Dementia with Lewy bodies
     Dosage: UNK
     Route: 065
  10. OLANZAPINE [Suspect]
     Active Substance: OLANZAPINE
     Indication: Communication disorder
     Dosage: 2.5 MILLIGRAM, QD
  11. OLANZAPINE [Suspect]
     Active Substance: OLANZAPINE
     Indication: Injury
  12. OLANZAPINE [Suspect]
     Active Substance: OLANZAPINE
     Indication: Agitation
  13. OLANZAPINE [Suspect]
     Active Substance: OLANZAPINE
     Indication: Post-traumatic stress disorder
  14. OLANZAPINE [Suspect]
     Active Substance: OLANZAPINE
     Indication: Dementia
  15. QUETIAPINE [Suspect]
     Active Substance: QUETIAPINE
     Indication: Hallucination
     Dosage: 100 MILLIGRAM, QD
  16. QUETIAPINE [Suspect]
     Active Substance: QUETIAPINE
     Indication: Accommodation disorder
     Dosage: 25 MILLIGRAM
  17. QUETIAPINE [Suspect]
     Active Substance: QUETIAPINE
     Dosage: 12.5 MILLIGRAM
  18. QUETIAPINE [Suspect]
     Active Substance: QUETIAPINE
     Dosage: 50 MILLIGRAM
  19. QUETIAPINE [Suspect]
     Active Substance: QUETIAPINE
     Dosage: 12.5 MILLIGRAM
  20. QUETIAPINE [Suspect]
     Active Substance: QUETIAPINE
     Dosage: 50 MILLIGRAM, QD
  21. QUETIAPINE [Suspect]
     Active Substance: QUETIAPINE
     Dosage: 12.5 MILLIGRAM
  22. QUETIAPINE [Suspect]
     Active Substance: QUETIAPINE
     Dosage: 100 MILLIGRAM
  23. QUETIAPINE [Suspect]
     Active Substance: QUETIAPINE
     Dosage: 50 MILLIGRAM
  24. QUETIAPINE [Suspect]
     Active Substance: QUETIAPINE
     Dosage: 25 MILLIGRAM
  25. RISPERIDONE [Suspect]
     Active Substance: RISPERIDONE
     Indication: Injury
     Dosage: 0.25 MILLIGRAM
  26. RISPERIDONE [Suspect]
     Active Substance: RISPERIDONE
     Indication: Dementia
  27. RISPERIDONE [Suspect]
     Active Substance: RISPERIDONE
     Indication: Post-traumatic stress disorder
  28. RIVASTIGMINE [Suspect]
     Active Substance: RIVASTIGMINE
     Indication: Dementia with Lewy bodies
     Dosage: 1.5 MILLIGRAM
  29. RIVASTIGMINE [Suspect]
     Active Substance: RIVASTIGMINE
     Dosage: 1.5 MILLIGRAM, QD
  30. TRAZODONE HYDROCHLORIDE [Suspect]
     Active Substance: TRAZODONE HYDROCHLORIDE
     Dosage: 100 MILLIGRAM, QD
     Route: 065
  31. TRAZODONE HYDROCHLORIDE [Suspect]
     Active Substance: TRAZODONE HYDROCHLORIDE
     Dosage: 25 MILLIGRAM, QD
     Route: 065
  32. TRAZODONE HYDROCHLORIDE [Suspect]
     Active Substance: TRAZODONE HYDROCHLORIDE
     Dosage: 50 MILLIGRAM, QD
     Route: 065

REACTIONS (2)
  - Parkinsonism [Recovered/Resolved]
  - Off label use [Recovered/Resolved]
